FAERS Safety Report 20962272 (Version 2)
Quarter: 2022Q3

REPORT INFORMATION
  Report Type: Spontaneous
  Country: US (occurrence: US)
  Receive Date: 20220615
  Receipt Date: 20220720
  Transmission Date: 20221027
  Serious: No
  Sender: FDA-Public Use
  Company Number: US-PFIZER INC-PV202200000409

PATIENT
  Age: 80 Year
  Sex: Male
  Weight: 81.64 kg

DRUGS (7)
  1. PAXLOVID [Suspect]
     Active Substance: NIRMATRELVIR\RITONAVIR
     Indication: COVID-19 treatment
     Dosage: 20X150MG 10X 100MG EVERY 12 HOURS
     Dates: start: 20220601, end: 2022
  2. ALLOPURINOL [Concomitant]
     Active Substance: ALLOPURINOL
     Dosage: UNK
  3. JARDIANCE [Concomitant]
     Active Substance: EMPAGLIFLOZIN
     Dosage: UNK
     Dates: start: 2022
  4. ENTRESTO [Concomitant]
     Active Substance: SACUBITRIL\VALSARTAN
     Dosage: 49.5MG
     Dates: start: 2020
  5. WARFARIN SODIUM [Concomitant]
     Active Substance: WARFARIN SODIUM
     Dosage: UNK
  6. SIMVASTATIN [Concomitant]
     Active Substance: SIMVASTATIN
     Dosage: UNK
  7. METOPROLOL [Concomitant]
     Active Substance: METOPROLOL
     Dosage: UNK
     Dates: start: 202101

REACTIONS (4)
  - Incorrect dose administered [Unknown]
  - Dysgeusia [Recovered/Resolved]
  - Bowel movement irregularity [Recovered/Resolved]
  - International normalised ratio abnormal [Recovered/Resolved]

NARRATIVE: CASE EVENT DATE: 20220601
